FAERS Safety Report 6360276-0 (Version None)
Quarter: 2009Q3

REPORT INFORMATION
  Report Type: 
  Country: None (occurrence: None)
  Receive Date: 20090917
  Receipt Date: 20090908
  Transmission Date: 20100115
  Serious: No
  Sender: FDA-Public Use
  Company Number: US-B.I. PHARMACEUTICALS,INC./RIDGEFIELD-2009-BP-10506BP

PATIENT
  Sex: Male

DRUGS (2)
  1. MIRAPEX [Suspect]
     Indication: RESTLESS LEGS SYNDROME
     Dosage: 1.5 MG
     Route: 048
     Dates: start: 20080101, end: 20090901
  2. MIRAPEX [Suspect]
     Dosage: 2.25 MG
     Route: 048
     Dates: start: 20090901

REACTIONS (2)
  - CONDITION AGGRAVATED [None]
  - INAPPROPRIATE SCHEDULE OF DRUG ADMINISTRATION [None]
